FAERS Safety Report 6602082-5 (Version None)
Quarter: 2010Q1

REPORT INFORMATION
  Report Type: 
  Country: None (occurrence: None)
  Receive Date: 20100225
  Receipt Date: 20100211
  Transmission Date: 20100710
  Serious: Yes (Hospitalization, Other)
  Sender: FDA-Public Use
  Company Number: PHEH2008US10484

PATIENT
  Sex: Female

DRUGS (9)
  1. ZELNORM [Suspect]
     Indication: IRRITABLE BOWEL SYNDROME
  2. TRILEPTAL [Concomitant]
  3. ZANAFLEX [Concomitant]
  4. PROTONIX [Concomitant]
  5. SENOKOT [Concomitant]
  6. KEPPRA [Concomitant]
     Dosage: 500 MG, UNK
  7. COLACE [Concomitant]
  8. SIMVASTATIN [Concomitant]
  9. TIZANIDINE HCL [Concomitant]

REACTIONS (11)
  - ANEURYSM REPAIR [None]
  - ATRIAL SEPTAL DEFECT [None]
  - CEREBRAL HAEMORRHAGE [None]
  - CEREBRAL INFARCTION [None]
  - CEREBROVASCULAR ACCIDENT [None]
  - CONVULSION [None]
  - CRANIOTOMY [None]
  - EMOTIONAL DISTRESS [None]
  - HEMIPARESIS [None]
  - INJURY [None]
  - THROMBOSIS [None]
